FAERS Safety Report 6113091-7 (Version None)
Quarter: 2009Q1

REPORT INFORMATION
  Report Type: 
  Country: None (occurrence: None)
  Receive Date: 20090312
  Receipt Date: 20090225
  Transmission Date: 20090719
  Serious: Yes (Hospitalization)
  Sender: FDA-Public Use
  Company Number: US-AMGEN-STX335710

PATIENT
  Sex: Male

DRUGS (2)
  1. SENSIPAR [Suspect]
     Indication: HYPERPARATHYROIDISM SECONDARY
  2. VITAMIN D [Concomitant]

REACTIONS (3)
  - BLOOD PARATHYROID HORMONE DECREASED [None]
  - HOSPITALISATION [None]
  - HYPOTENSION [None]
